FAERS Safety Report 18853679 (Version 1)
Quarter: 2021Q1

REPORT INFORMATION
  Report Type: Report from Study
  Country: CN (occurrence: CN)
  Receive Date: 20210205
  Receipt Date: 20210205
  Transmission Date: 20210420
  Serious: Yes (Death, Hospitalization)
  Sender: FDA-Public Use
  Company Number: CN-PFIZER INC-2021094867

PATIENT
  Age: 69 Year
  Sex: Male

DRUGS (48)
  1. CARBOPLATIN. [Suspect]
     Active Substance: CARBOPLATIN
     Indication: NON-SMALL CELL LUNG CANCER
     Dosage: 500 MG, EVERY 3 WEEKS (TIWK)
     Route: 042
     Dates: start: 20180817, end: 20180817
  2. ANZATAX (PACLITAXEL) [Suspect]
     Active Substance: PACLITAXEL
     Indication: NON-SMALL CELL LUNG CANCER
     Dosage: UNK
     Route: 042
     Dates: start: 20180817, end: 20180817
  3. ANZATAX (PACLITAXEL) [Suspect]
     Active Substance: PACLITAXEL
     Dosage: UNK
     Route: 042
     Dates: start: 20180727, end: 20180727
  4. OXYCODONE HYDROCHLORIDE. [Concomitant]
     Active Substance: OXYCODONE HYDROCHLORIDE
     Dosage: 30 MG, BID
     Route: 048
     Dates: start: 20180903, end: 20180925
  5. OXYCODONE HYDROCHLORIDE. [Concomitant]
     Active Substance: OXYCODONE HYDROCHLORIDE
     Dosage: 40 MG, BID
     Route: 048
     Dates: start: 20180827, end: 20181012
  6. CIMETIDINE [Concomitant]
     Active Substance: CIMETIDINE
     Indication: PROPHYLAXIS
     Dosage: 0.4 G, ONCE
     Route: 042
     Dates: start: 20180727, end: 20180727
  7. CIMETIDINE [Concomitant]
     Active Substance: CIMETIDINE
     Dosage: 0.4 G, ONCE
     Route: 042
     Dates: start: 20180907, end: 20180907
  8. ALUMINIUM PHOSPHATE GEL [Concomitant]
     Indication: PROPHYLAXIS
     Dosage: 20 G, TID
     Route: 048
     Dates: start: 20180726, end: 20180726
  9. BUDESONIDE. [Concomitant]
     Active Substance: BUDESONIDE
     Indication: HAEMOPTYSIS
     Dosage: 2 MG, DAILY
     Route: 055
     Dates: start: 20180903, end: 20180904
  10. GLUTAMINE [Concomitant]
     Active Substance: GLUTAMINE
     Indication: PROPHYLAXIS
     Dosage: 660 MG, TID
     Dates: start: 20180726, end: 20180726
  11. DEXAMETHASONE. [Concomitant]
     Active Substance: DEXAMETHASONE
     Indication: ALLERGY PROPHYLAXIS
     Dosage: 10 MG, DAILY
     Route: 048
     Dates: start: 20180726, end: 20180727
  12. DEXAMETHASONE. [Concomitant]
     Active Substance: DEXAMETHASONE
     Dosage: 10 MG, DAILY
     Route: 048
     Dates: start: 20180816, end: 20180817
  13. DEXAMETHASONE. [Concomitant]
     Active Substance: DEXAMETHASONE
     Dosage: 10 MG, DAILY
     Route: 048
     Dates: start: 20180906, end: 20180907
  14. LACTOBACILLUS BULGARICUS [Concomitant]
     Active Substance: LACTOBACILLUS DELBRUECKII BULGARICUS
     Indication: DYSBIOSIS
     Dosage: 1.5 G, TID
     Route: 048
     Dates: start: 20180818, end: 20180827
  15. GLUTAMINE [Concomitant]
     Active Substance: GLUTAMINE
     Dosage: 660 MG, TID
     Route: 048
     Dates: start: 20180816, end: 20180816
  16. CEFUROXIME SODIUM. [Concomitant]
     Active Substance: CEFUROXIME SODIUM
     Dosage: 1.5 G, BID
     Route: 042
     Dates: start: 20180905, end: 20180911
  17. CIMETIDINE [Concomitant]
     Active Substance: CIMETIDINE
     Dosage: 0.4 G, ONCE
     Route: 042
     Dates: start: 20180817, end: 20180817
  18. CIMETIDINE [Concomitant]
     Active Substance: CIMETIDINE
     Dosage: 0.4 G, ONCE
     Route: 042
     Dates: start: 20180928, end: 20180928
  19. VITAMIN B6 [Concomitant]
     Active Substance: PYRIDOXINE HYDROCHLORIDE
     Indication: PROPHYLAXIS
     Dosage: 0.1 G, ONCE
     Route: 042
     Dates: start: 20180817, end: 20180817
  20. VITAMIN C [Concomitant]
     Active Substance: ASCORBIC ACID
     Indication: VITAMIN SUPPLEMENTATION
     Dosage: 1 G, ONCE
     Route: 042
     Dates: start: 20180817, end: 20180817
  21. TRIMEBUTINE [Concomitant]
     Active Substance: TRIMEBUTINE
     Indication: GASTROINTESTINAL EXAMINATION
     Dosage: 100 MG, TID
     Route: 048
     Dates: start: 20180818, end: 20180827
  22. CALCIUM/MAGNESIUM/POTASSIUM [Concomitant]
     Indication: BLOOD ELECTROLYTES
     Dosage: 500 ML, ONCE
     Route: 042
     Dates: start: 20180817, end: 20180817
  23. DOXOFYLLINE [Concomitant]
     Active Substance: DOXOFYLLINE
     Indication: HAEMOPTYSIS
     Dosage: 0.3 G, DAILY
     Route: 042
     Dates: start: 20180903, end: 20180912
  24. CARBOPLATIN. [Suspect]
     Active Substance: CARBOPLATIN
     Dosage: 500 MG, EVERY 3 WEEKS (TIWK)
     Route: 042
     Dates: start: 20180928, end: 20180928
  25. CEFUROXIME SODIUM. [Concomitant]
     Active Substance: CEFUROXIME SODIUM
     Indication: ANTI-INFECTIVE THERAPY
     Dosage: 1.5 G, DAILY
     Route: 042
     Dates: start: 20180726, end: 20180727
  26. PALONOSETRON HYDROCHLORIDE. [Concomitant]
     Active Substance: PALONOSETRON HYDROCHLORIDE
     Dosage: 0.3 MG, ONCE
     Route: 042
     Dates: start: 20180928, end: 20180928
  27. PROMETHAZINE [Concomitant]
     Active Substance: PROMETHAZINE HYDROCHLORIDE
     Indication: ALLERGY PROPHYLAXIS
     Dosage: 25 MG, ONCE
     Route: 030
     Dates: start: 20180727, end: 20180727
  28. IPRATROPIUM BROMIDE. [Concomitant]
     Active Substance: IPRATROPIUM BROMIDE
     Dosage: 2.5 ML, BID
     Route: 055
     Dates: start: 20180905, end: 20180912
  29. ETHYLENEDIAMINE DIACETURATE [Concomitant]
     Indication: HAEMOPTYSIS
     Dosage: 0.4 G, DAILY
     Route: 042
     Dates: start: 20180903, end: 20180909
  30. CARBOPLATIN. [Suspect]
     Active Substance: CARBOPLATIN
     Dosage: 500 MG, EVERY 3 WEEKS (TIWK)
     Route: 042
     Dates: start: 20180907, end: 20180907
  31. CARBOPLATIN. [Suspect]
     Active Substance: CARBOPLATIN
     Dosage: 500 MG, EVERY 3 WEEKS (TIWK)
     Route: 042
     Dates: start: 20180727, end: 20180727
  32. PALONOSETRON HYDROCHLORIDE. [Concomitant]
     Active Substance: PALONOSETRON HYDROCHLORIDE
     Indication: ANTIEMETIC SUPPORTIVE CARE
     Dosage: 250 UG, ONCE
     Route: 042
     Dates: start: 20180727, end: 20180827
  33. PALONOSETRON HYDROCHLORIDE. [Concomitant]
     Active Substance: PALONOSETRON HYDROCHLORIDE
     Dosage: 250 UG, ONCE
     Route: 042
     Dates: start: 20180817, end: 20180817
  34. PALONOSETRON HYDROCHLORIDE. [Concomitant]
     Active Substance: PALONOSETRON HYDROCHLORIDE
     Dosage: 0.3 MG, ONCE
     Route: 042
     Dates: start: 20180907, end: 20180907
  35. PROMETHAZINE [Concomitant]
     Active Substance: PROMETHAZINE HYDROCHLORIDE
     Dosage: 25 MG, ONCE
     Route: 030
     Dates: start: 20180817, end: 20180817
  36. IPRATROPIUM BROMIDE. [Concomitant]
     Active Substance: IPRATROPIUM BROMIDE
     Indication: HAEMOPTYSIS
     Dosage: 2.5 ML, DAILY
     Route: 055
     Dates: start: 20180903, end: 20180904
  37. CHYMOTRYPSIN [Concomitant]
     Active Substance: CHYMOTRYPSIN
     Indication: HAEMOPTYSIS
     Dosage: 4000 U, ONCE
     Route: 055
     Dates: start: 20180903, end: 20180903
  38. ANZATAX (PACLITAXEL) [Suspect]
     Active Substance: PACLITAXEL
     Dosage: UNK
     Route: 042
     Dates: start: 20180907, end: 20180907
  39. ANZATAX (PACLITAXEL) [Suspect]
     Active Substance: PACLITAXEL
     Dosage: UNK
     Route: 042
     Dates: start: 20180928, end: 20180928
  40. DEXAMETHASONE. [Concomitant]
     Active Substance: DEXAMETHASONE
     Dosage: 10 MG, DAILY
     Route: 048
     Dates: start: 20180927, end: 20180928
  41. OXYCODONE HYDROCHLORIDE. [Concomitant]
     Active Substance: OXYCODONE HYDROCHLORIDE
     Dosage: 30 MG, BID
     Route: 048
     Dates: start: 20180728, end: 20180813
  42. PROMETHAZINE [Concomitant]
     Active Substance: PROMETHAZINE HYDROCHLORIDE
     Dosage: 25 MG, ONCE
     Route: 030
     Dates: start: 20180807, end: 20180807
  43. GRANULOCYTE COLONY STIMULATING FACTOR [Concomitant]
     Active Substance: GRANULOCYTE COLONY-STIMULATING FACTOR NOS
     Indication: WHITE BLOOD CELL COUNT
     Dosage: 6 MG, ONCE
     Route: 058
     Dates: start: 20180730, end: 20180730
  44. BUDESONIDE. [Concomitant]
     Active Substance: BUDESONIDE
     Dosage: 2 MG, BID
     Route: 055
     Dates: start: 20180905, end: 20180912
  45. OXYCODONE HYDROCHLORIDE. [Concomitant]
     Active Substance: OXYCODONE HYDROCHLORIDE
     Indication: PAIN
     Dosage: 20 MG, ONCE
     Route: 048
     Dates: start: 20180726, end: 20180726
  46. OXYCODONE HYDROCHLORIDE. [Concomitant]
     Active Substance: OXYCODONE HYDROCHLORIDE
     Dosage: 30 MG, BID
     Route: 048
     Dates: start: 20180817, end: 20180831
  47. CHYMOTRYPSIN [Concomitant]
     Active Substance: CHYMOTRYPSIN
     Dosage: 4000 U, TWO TIMES A DAY
     Route: 055
     Dates: start: 20180904, end: 20180912
  48. ETIMICIN SULFATE [Concomitant]
     Active Substance: ETIMICIN SULFATE
     Indication: HAEMOPTYSIS
     Dosage: 0.2 G, ONCE
     Route: 042
     Dates: start: 20180905, end: 20180911

REACTIONS (1)
  - Pain in extremity [Recovering/Resolving]

NARRATIVE: CASE EVENT DATE: 20180929
